FAERS Safety Report 25949806 (Version 5)
Quarter: 2025Q4

REPORT INFORMATION
  Report Type: Spontaneous
  Country: AE (occurrence: AE)
  Receive Date: 20251022
  Receipt Date: 20251224
  Transmission Date: 20260118
  Serious: No
  Sender: PFIZER
  Company Number: AE-PFIZER INC-PV202500120643

PATIENT

DRUGS (1)
  1. ZITHROMAX [Suspect]
     Active Substance: AZITHROMYCIN DIHYDRATE
     Dosage: 9 ML AT ONCE

REACTIONS (2)
  - Accidental overdose [Unknown]
  - Product label confusion [Unknown]
